FAERS Safety Report 23648445 (Version 1)
Quarter: 2024Q1

REPORT INFORMATION
  Report Type: Spontaneous
  Country: GB (occurrence: GB)
  Receive Date: 20240319
  Receipt Date: 20240319
  Transmission Date: 20240409
  Serious: Yes (Other)
  Sender: FDA-Public Use
  Company Number: None

PATIENT
  Age: 94 Year
  Sex: Male

DRUGS (2)
  1. APIXABAN [Suspect]
     Active Substance: APIXABAN
     Indication: Deep vein thrombosis
     Dosage: 10 MILLIGRAM, BID (10MG BD)
     Route: 065
     Dates: start: 20240301
  2. DALTEPARIN [Suspect]
     Active Substance: DALTEPARIN
     Indication: Deep vein thrombosis
     Dosage: 15,00UNITS
     Route: 065
     Dates: start: 20240301, end: 20240301

REACTIONS (2)
  - Cutaneous vasculitis [Unknown]
  - Medication error [Unknown]

NARRATIVE: CASE EVENT DATE: 20240303
